FAERS Safety Report 18145111 (Version 1)
Quarter: 2020Q3

REPORT INFORMATION
  Report Type: Spontaneous
  Country: US (occurrence: US)
  Receive Date: 20200813
  Receipt Date: 20200813
  Transmission Date: 20201103
  Serious: No
  Sender: FDA-Public Use
  Company Number: US-PFIZER INC-2020309944

PATIENT
  Age: 71 Year
  Sex: Female

DRUGS (2)
  1. XELJANZ XR [Suspect]
     Active Substance: TOFACITINIB CITRATE
     Dosage: 11 MG
  2. METHOTREXATE SODIUM. [Suspect]
     Active Substance: METHOTREXATE SODIUM
     Dosage: UNK

REACTIONS (7)
  - Arthralgia [Unknown]
  - Rotator cuff syndrome [Unknown]
  - Hand deformity [Unknown]
  - Atrophy [Unknown]
  - Mycobacterium test positive [Unknown]
  - Back pain [Unknown]
  - Mycobacterium tuberculosis complex test positive [Unknown]
